FAERS Safety Report 24410306 (Version 1)
Quarter: 2024Q4

REPORT INFORMATION
  Report Type: Spontaneous
  Country: ES (occurrence: ES)
  Receive Date: 20241008
  Receipt Date: 20241008
  Transmission Date: 20250115
  Serious: Yes (Death, Other)
  Sender: RANBAXY
  Company Number: ES-SUN PHARMACEUTICAL INDUSTRIES LTD-2024RR-471935

PATIENT
  Age: 38 Year
  Sex: Male

DRUGS (1)
  1. TEMOZOLOMIDE [Suspect]
     Active Substance: TEMOZOLOMIDE
     Indication: Glioblastoma
     Dosage: 150-200 MG/M^2 DAYS 1-5/Q4WK FOR 6 CYCLES
     Route: 065

REACTIONS (2)
  - Disease progression [Fatal]
  - Disease recurrence [Not Recovered/Not Resolved]
